FAERS Safety Report 7319527-8 (Version None)
Quarter: 2011Q1

REPORT INFORMATION
  Report Type: 
  Country: None (occurrence: None)
  Receive Date: 20110228
  Receipt Date: 20100513
  Transmission Date: 20110831
  Serious: No
  Sender: FDA-Public Use
  Company Number: A0857700A

PATIENT
  Age: 47 Year
  Sex: Female

DRUGS (4)
  1. LAMICTAL [Suspect]
     Indication: BIPOLAR DISORDER
     Dosage: 200MG PER DAY
     Route: 048
     Dates: start: 20100301
  2. GEODON [Concomitant]
  3. GLUCOPHAGE [Concomitant]
  4. PRAVASTATIN [Concomitant]

REACTIONS (2)
  - RASH VESICULAR [None]
  - DERMATITIS CONTACT [None]
